FAERS Safety Report 11854130 (Version 1)
Quarter: 2015Q4

REPORT INFORMATION
  Report Type: Not Available
  Country: US (occurrence: US)
  Receive Date: 20151220
  Receipt Date: 20151220
  Transmission Date: 20160305
  Serious: Yes (Life-Threatening, Hospitalization, Congenital Anomaly)
  Sender: FDA-Public Use
  Company Number: US-ANIPHARMA-2015-US-000815

PATIENT
  Age: 4 Year
  Sex: Male

DRUGS (1)
  1. VALPROIC ACID ORAL SOLUTION USP [Suspect]
     Active Substance: VALPROIC ACID
     Route: 015

REACTIONS (10)
  - Atrial septal defect [Not Recovered/Not Resolved]
  - Lymphadenopathy [None]
  - Castleman^s disease [None]
  - Pneumonia [Unknown]
  - Maternal drugs affecting foetus [None]
  - Pulmonary vein stenosis [Not Recovered/Not Resolved]
  - Lymphadenopathy mediastinal [Not Recovered/Not Resolved]
  - Foetal anticonvulsant syndrome [Not Recovered/Not Resolved]
  - Pulmonary fibrosis [Unknown]
  - Ventricular septal defect [Not Recovered/Not Resolved]
